FAERS Safety Report 6649988-9 (Version None)
Quarter: 2010Q1

REPORT INFORMATION
  Report Type: 
  Country: None (occurrence: None)
  Receive Date: 20100324
  Receipt Date: 20100324
  Transmission Date: 20100710
  Serious: Yes (Hospitalization)
  Sender: FDA-Public Use
  Company Number: None

PATIENT
  Age: 55 Year
  Sex: Female
  Weight: 83.4619 kg

DRUGS (9)
  1. CHANTIX [Suspect]
     Indication: BIPOLAR DISORDER
     Dosage: 0.5 MG ONCE DAILY ORAL, 1 SINGLE DOSE
     Route: 048
     Dates: start: 20100311
  2. CHANTIX [Suspect]
     Indication: TOBACCO USER
     Dosage: 0.5 MG ONCE DAILY ORAL, 1 SINGLE DOSE
     Route: 048
     Dates: start: 20100311
  3. PLACEBO [Suspect]
     Dosage: 0.5 MG ONCE DAILY ORAL, 1 SINGLE DOSE
     Route: 048
     Dates: start: 20100311
  4. EQUETRO [Suspect]
  5. KLONOPIN [Suspect]
  6. ELOCON [Concomitant]
  7. LEVOTHYROXINE SODIUM [Concomitant]
  8. ALBUTEROL SULATE [Concomitant]
  9. RAPID RELEASE TYLENOL [Concomitant]

REACTIONS (7)
  - ANXIETY [None]
  - CRYING [None]
  - EMOTIONAL DISORDER [None]
  - FEELING ABNORMAL [None]
  - HYPOPHAGIA [None]
  - INSOMNIA [None]
  - THINKING ABNORMAL [None]
